FAERS Safety Report 18901034 (Version 1)
Quarter: 2021Q1

REPORT INFORMATION
  Report Type: Spontaneous
  Country: US (occurrence: US)
  Receive Date: 20210217
  Receipt Date: 20210217
  Transmission Date: 20210420
  Serious: Yes (Other)
  Sender: FDA-Public Use
  Company Number: US-CIPLA LTD.-2020US08734

PATIENT

DRUGS (3)
  1. DICLOFENAC [Suspect]
     Active Substance: DICLOFENAC
     Indication: RIB FRACTURE
     Dosage: 2 G, UNK
     Route: 061
     Dates: start: 20201110
  2. DICLOFENAC [Suspect]
     Active Substance: DICLOFENAC
     Indication: WRIST FRACTURE
     Dosage: UNK
     Route: 061
     Dates: start: 20201031
  3. LISINOPRIL. [Concomitant]
     Active Substance: LISINOPRIL
     Indication: BLOOD PRESSURE INCREASED
     Dosage: 20 MILLIGRAM, QD
     Route: 065

REACTIONS (4)
  - Adverse reaction [Unknown]
  - Product use in unapproved indication [Unknown]
  - Off label use [Unknown]
  - Blood pressure increased [Recovering/Resolving]

NARRATIVE: CASE EVENT DATE: 2020
